FAERS Safety Report 4870147-4 (Version None)
Quarter: 2005Q4

REPORT INFORMATION
  Report Type: 
  Country: None (occurrence: None)
  Receive Date: 20051229
  Receipt Date: 20051229
  Transmission Date: 20060501
  Serious: Yes (Life-Threatening, Hospitalization)
  Sender: FDA-Public Use
  Company Number: None

PATIENT
  Sex: Male
  Weight: 62 kg

DRUGS (3)
  1. TEMODAR [Suspect]
     Indication: GLIOBLASTOMA MULTIFORME
     Dosage: 250MG PO QD FOR 5 DAYS
     Route: 048
     Dates: start: 20051210, end: 20051214
  2. SCH66336 [Suspect]
     Indication: GLIOBLASTOMA MULTIFORME
     Dosage: 75MG PO BID FOR 28 DAYS
     Route: 048
     Dates: start: 20051210, end: 20051224
  3. DECADRON [Concomitant]

REACTIONS (3)
  - ASTHENIA [None]
  - DEEP VEIN THROMBOSIS [None]
  - DYSSTASIA [None]
